FAERS Safety Report 4446897-0 (Version None)
Quarter: 2004Q3

REPORT INFORMATION
  Report Type: 
  Country: None (occurrence: None)
  Receive Date: 20040908
  Receipt Date: 20040827
  Transmission Date: 20050211
  Serious: Yes (Life-Threatening, Hospitalization)
  Sender: FDA-Public Use
  Company Number: DE-2004-027560

PATIENT
  Age: 66 Year
  Sex: Male
  Weight: 66 kg

DRUGS (7)
  1. FLUDARA [Suspect]
     Indication: CHRONIC LYMPHOCYTIC LEUKAEMIA
     Dosage: SEE IMAGE
     Route: 042
     Dates: start: 20040329, end: 20040403
  2. FLUDARA [Suspect]
     Indication: CHRONIC LYMPHOCYTIC LEUKAEMIA
     Dosage: SEE IMAGE
     Route: 042
     Dates: start: 20040426, end: 20040501
  3. FLUDARA [Suspect]
     Indication: CHRONIC LYMPHOCYTIC LEUKAEMIA
     Dosage: SEE IMAGE
     Route: 042
     Dates: start: 20040524, end: 20040529
  4. METOCLOPRAMIDE [Concomitant]
  5. ALLOPURINOL [Concomitant]
  6. RANITIDINE [Concomitant]
  7. COTRIM FORTE ^HEUMANN^ [Concomitant]

REACTIONS (15)
  - BLOOD BRAIN BARRIER DEFECT [None]
  - CONVULSION [None]
  - DIPLEGIA [None]
  - DRUG TOXICITY [None]
  - DYSAESTHESIA [None]
  - FACIAL PALSY [None]
  - GUILLAIN-BARRE SYNDROME [None]
  - HYPERHIDROSIS [None]
  - HYPOAESTHESIA [None]
  - LEUKOENCEPHALOPATHY [None]
  - LYMPHOCYTIC INFILTRATION [None]
  - NEUROPATHIC PAIN [None]
  - POLYNEUROPATHY [None]
  - SENSORIMOTOR DISORDER [None]
  - SKIN DISCOLOURATION [None]
